FAERS Safety Report 7336024-4 (Version None)
Quarter: 2011Q1

REPORT INFORMATION
  Report Type: 
  Country: None (occurrence: None)
  Receive Date: 20110307
  Receipt Date: 20110222
  Transmission Date: 20110831
  Serious: Yes (Hospitalization, Other)
  Sender: FDA-Public Use
  Company Number: FR-ELI_LILLY_AND_COMPANY-FR201102007291

PATIENT
  Age: 69 Year
  Sex: Male

DRUGS (8)
  1. AVASTIN [Concomitant]
  2. CARBOPLATIN [Concomitant]
     Dosage: UNK, UNKNOWN
  3. VITAMIN B-12 [Concomitant]
     Indication: VITAMIN SUPPLEMENTATION
  4. PEMETREXED [Suspect]
     Indication: NON-SMALL CELL LUNG CANCER
     Dosage: UNK, UNKNOWN
  5. GEMZAR [Concomitant]
     Dosage: UNK, UNKNOWN
  6. TAXOTERE [Concomitant]
     Dosage: UNK, UNKNOWN
  7. FOLIC ACID [Concomitant]
  8. CORTICOSTEROIDS [Concomitant]
     Indication: PROPHYLAXIS

REACTIONS (4)
  - ANAEMIA [None]
  - LYMPHOPENIA [None]
  - PNEUMOCYSTIS JIROVECI PNEUMONIA [None]
  - HYPOXIA [None]
